FAERS Safety Report 8821679 (Version 2)
Quarter: 2012Q4

REPORT INFORMATION
  Report Type: Report from Study
  Country: US (occurrence: US)
  Receive Date: 20121002
  Receipt Date: 20121126
  Transmission Date: 20130627
  Serious: No
  Sender: FDA-Public Use
  Company Number: US-VERTEX PHARMACEUTICAL INC.-2012-020521

PATIENT
  Age: 62 Year
  Sex: Female
  Weight: 93.88 kg

DRUGS (11)
  1. VX-950 (TELAPREVIR) [Suspect]
     Indication: HEPATITIS C
     Dosage: 750 mg, tid
     Route: 048
     Dates: start: 20110823, end: 20111115
  2. PEGINTERFERON ALFA-2A [Concomitant]
     Indication: HEPATITIS C
     Dosage: UNK
     Dates: end: 20120723
  3. RIBAVIRIN [Concomitant]
     Indication: HEPATITIS C
     Dosage: UNK
     Dates: end: 20120723
  4. ALENDRONATE SODIUM [Concomitant]
     Dosage: 10 mg, qd
  5. LEXAPRO [Concomitant]
     Dosage: 20 mg, qd
  6. LISINOPRIL [Concomitant]
     Dosage: 10 mg, qd
     Route: 048
  7. FOLIC ACID [Concomitant]
     Dosage: UNK, bid
  8. HYDROCODONE/ACETAMINOPHEN          /00607101/ [Concomitant]
     Dosage: UNK, prn
  9. MELATONIN [Concomitant]
     Dosage: 3 mg, qd
  10. MAGNESIUM [Concomitant]
     Dosage: 200 mg, qd
  11. OMEGA 3                            /01334101/ [Concomitant]

REACTIONS (4)
  - Fungal infection [Unknown]
  - Rash [Recovered/Resolved]
  - Rash macular [Recovered/Resolved]
  - Pruritus [Unknown]
